FAERS Safety Report 8483796-1 (Version None)
Quarter: 2012Q3

REPORT INFORMATION
  Report Type: 
  Country: None (occurrence: None)
  Receive Date: 20120703
  Receipt Date: 20120625
  Transmission Date: 20120928
  Serious: No
  Sender: FDA-Public Use
  Company Number: US-BIOGENIDEC-2012BI022701

PATIENT
  Age: 42 Year
  Sex: Female

DRUGS (2)
  1. TYSABRI [Suspect]
     Indication: MULTIPLE SCLEROSIS
     Route: 042
  2. GILENYA [Concomitant]
     Indication: MULTIPLE SCLEROSIS
     Dates: start: 20120609, end: 20120611

REACTIONS (4)
  - DRUG HYPERSENSITIVITY [None]
  - VOMITING [None]
  - NAUSEA [None]
  - DIARRHOEA [None]
